FAERS Safety Report 8309394-8 (Version None)
Quarter: 2012Q2

REPORT INFORMATION
  Report Type: 
  Country: None (occurrence: None)
  Receive Date: 20120420
  Receipt Date: 20120403
  Transmission Date: 20120825
  Serious: Yes (Other)
  Sender: FDA-Public Use
  Company Number: DSA_56057_2012

PATIENT
  Sex: Female

DRUGS (2)
  1. ENALAPRIL MALEATE [Suspect]
     Indication: HYPERTENSION
     Dosage: 20 MG, MORNING, ORAL
     Route: 048
     Dates: start: 19950101
  2. TIMOPTOL-XE ()TIMOPTOL XE - TIMOPTOL) [Suspect]
     Indication: INTRAOCULAR PRESSURE TEST
     Dosage: 2 DF, AM, OPHTHALMIC
     Route: 047
     Dates: start: 20120101

REACTIONS (10)
  - INTRAOCULAR PRESSURE INCREASED [None]
  - TINNITUS [None]
  - UTERINE LEIOMYOMA [None]
  - IATROGENIC INJURY [None]
  - ASTHMA [None]
  - PALPITATIONS [None]
  - PROCEDURAL COMPLICATION [None]
  - WEIGHT DECREASED [None]
  - FATIGUE [None]
  - BLADDER PERFORATION [None]
